FAERS Safety Report 5570038-X (Version None)
Quarter: 2007Q4

REPORT INFORMATION
  Report Type: 
  Country: None (occurrence: None)
  Receive Date: 20071220
  Receipt Date: 20071210
  Transmission Date: 20080405
  Serious: Yes (Death, Hospitalization)
  Sender: FDA-Public Use
  Company Number: FR-PFIZER INC-2007104383

PATIENT
  Age: 81 Year
  Sex: Female

DRUGS (7)
  1. TAHOR [Suspect]
     Indication: MYOCARDIAL INFARCTION
  2. TAHOR [Suspect]
     Indication: ANGIOPLASTY
  3. FLUINDIONE [Concomitant]
  4. CARDENSIEL [Concomitant]
  5. ALL OTHER THERAPEUTIC PRODUCTS [Concomitant]
  6. PLAVIX [Concomitant]
  7. OMEPRAZOLE [Concomitant]

REACTIONS (2)
  - BLOOD CREATINE PHOSPHOKINASE INCREASED [None]
  - RHABDOMYOLYSIS [None]
